FAERS Safety Report 9797562 (Version 4)
Quarter: 2014Q3

REPORT INFORMATION
  Report Type: Report from Study
  Country: CA (occurrence: CA)
  Receive Date: 20140106
  Receipt Date: 20140926
  Transmission Date: 20150326
  Serious: Yes (Hospitalization, Other)
  Sender: FDA-Public Use
  Company Number: CA-ROCHE-1187527

PATIENT
  Sex: Female
  Weight: 108.96 kg

DRUGS (16)
  1. HYDROXYUREA. [Concomitant]
     Active Substance: HYDROXYUREA
  2. AMLODIPINE [Concomitant]
     Active Substance: AMLODIPINE BESYLATE
  3. PRISTIQ EXTENDED RELEASE [Concomitant]
     Active Substance: DESVENLAFAXINE SUCCINATE
  4. RITUXAN [Suspect]
     Active Substance: RITUXIMAB
     Indication: SYSTEMIC LUPUS ERYTHEMATOSUS
     Route: 042
     Dates: start: 20111219, end: 20120719
  5. INDAPAMIDE. [Concomitant]
     Active Substance: INDAPAMIDE
  6. ACTONEL [Concomitant]
     Active Substance: RISEDRONATE SODIUM
  7. PREDNISONE. [Concomitant]
     Active Substance: PREDNISONE
  8. CHLOROQUINE [Concomitant]
     Active Substance: CHLOROQUINE\CHLOROQUINE PHOSPHATE
  9. ACETYLSALICYLIC ACID (ASA) [Concomitant]
  10. PANTOPRAZOLE [Concomitant]
     Active Substance: PANTOPRAZOLE SODIUM
  11. ACETAMINOPHEN. [Concomitant]
     Active Substance: ACETAMINOPHEN
     Indication: PREMEDICATION
     Route: 048
     Dates: start: 20111219, end: 20120719
  12. RITUXAN [Suspect]
     Active Substance: RITUXIMAB
     Indication: PSORIATIC ARTHROPATHY
  13. MONTELUKAST [Concomitant]
     Active Substance: MONTELUKAST SODIUM
  14. D-TABS [Concomitant]
     Active Substance: CHOLECALCIFEROL
  15. ADVAIR HFA [Concomitant]
     Active Substance: FLUTICASONE PROPIONATE\SALMETEROL XINAFOATE
  16. METHYLPREDNISOLONE [Concomitant]
     Active Substance: METHYLPREDNISOLONE
     Indication: PREMEDICATION
     Route: 042
     Dates: start: 20111219, end: 20120719

REACTIONS (7)
  - Drug ineffective [Unknown]
  - Hepatitis viral [Unknown]
  - Eye infection [Unknown]
  - Gastric disorder [Recovering/Resolving]
  - Fabry^s disease [Unknown]
  - Hypertension [Unknown]
  - Off label use [Unknown]

NARRATIVE: CASE EVENT DATE: 2012
